FAERS Safety Report 5920389-1 (Version None)
Quarter: 2008Q4

REPORT INFORMATION
  Report Type: 
  Country: None (occurrence: None)
  Receive Date: 20081016
  Receipt Date: 20081009
  Transmission Date: 20090506
  Serious: Yes (Life-Threatening, Other)
  Sender: FDA-Public Use
  Company Number: PHEH2008US06836

PATIENT
  Sex: Male
  Weight: 63 kg

DRUGS (7)
  1. GLEEVEC [Suspect]
     Indication: GASTROINTESTINAL STROMAL TUMOUR
     Dosage: 400 MG, QD
     Route: 048
     Dates: start: 20070801, end: 20070901
  2. COMTAN [Concomitant]
     Indication: PARKINSON'S DISEASE
     Dosage: 200 MG, QD
  3. SINEMET [Concomitant]
     Indication: PARKINSON'S DISEASE
     Dosage: 25/100 MG 6 PILLS/DAY
  4. LEXAPRO [Concomitant]
  5. FIBERCON [Concomitant]
     Dosage: UNK
  6. MULTI-VITAMINS [Concomitant]
     Dosage: UNK
  7. B12 ^RECIP^ [Concomitant]
     Dosage: UNK

REACTIONS (23)
  - ABASIA [None]
  - ANAEMIA [None]
  - ASTHENIA [None]
  - BLOOD GLUCOSE INCREASED [None]
  - BLOOD UREA NITROGEN/CREATININE RATIO INCREASED [None]
  - CONSTIPATION [None]
  - DRUG INTOLERANCE [None]
  - DYSPHASIA [None]
  - FEELING ABNORMAL [None]
  - GENERAL PHYSICAL HEALTH DETERIORATION [None]
  - GRANULOCYTE COUNT INCREASED [None]
  - HAEMATOCRIT DECREASED [None]
  - HAEMOGLOBIN DECREASED [None]
  - IRRITABILITY [None]
  - LEUKOCYTOSIS [None]
  - LISTLESS [None]
  - LYMPHOCYTE COUNT INCREASED [None]
  - MALIGNANT NEOPLASM PROGRESSION [None]
  - MUSCULAR WEAKNESS [None]
  - PARKINSON'S DISEASE [None]
  - PLATELET COUNT INCREASED [None]
  - RED BLOOD CELL COUNT DECREASED [None]
  - TUMOUR NECROSIS [None]
